FAERS Safety Report 13111362 (Version 2)
Quarter: 2017Q1

REPORT INFORMATION
  Report Type: Spontaneous
  Country: US (occurrence: US)
  Receive Date: 20170112
  Receipt Date: 20170228
  Transmission Date: 20170428
  Serious: Yes (Death)
  Sender: FDA-Public Use
  Company Number: US-BAUSCH-BL-2017-000935

PATIENT
  Sex: Female

DRUGS (1)
  1. XENAZINE [Suspect]
     Active Substance: TETRABENAZINE
     Indication: HUNTINGTON^S DISEASE
     Route: 048
     Dates: start: 20160720

REACTIONS (1)
  - Death [Fatal]
